FAERS Safety Report 11082205 (Version 4)
Quarter: 2015Q4

REPORT INFORMATION
  Report Type: Report from Study
  Country: US (occurrence: US)
  Receive Date: 20150501
  Receipt Date: 20151110
  Transmission Date: 20160304
  Serious: Yes (Hospitalization)
  Sender: FDA-Public Use
  Company Number: US-ACTELION-A-US2015-111700

PATIENT
  Age: 84 Year
  Sex: Female

DRUGS (3)
  1. TRACLEER [Suspect]
     Active Substance: BOSENTAN
     Indication: PULMONARY HYPERTENSION
     Dosage: 125 MG, BID
     Route: 048
     Dates: start: 201109
  2. COUMADIN [Concomitant]
     Active Substance: WARFARIN SODIUM
  3. PLAVIX [Concomitant]
     Active Substance: CLOPIDOGREL BISULFATE

REACTIONS (8)
  - Angina pectoris [Unknown]
  - Productive cough [Unknown]
  - Cardiac pacemaker replacement [Unknown]
  - Chest pain [Recovered/Resolved]
  - Pneumonia [Unknown]
  - Dysuria [Unknown]
  - Atrial fibrillation [Unknown]
  - Presyncope [Recovered/Resolved]
